FAERS Safety Report 16112312 (Version 1)
Quarter: 2019Q1

REPORT INFORMATION
  Report Type: Spontaneous
  Country: US (occurrence: US)
  Receive Date: 20190325
  Receipt Date: 20190325
  Transmission Date: 20190418
  Serious: No
  Sender: FDA-Public Use
  Company Number: US-BAUSCH-BL-2019-007624

PATIENT
  Age: 60 Year
  Sex: Female

DRUGS (1)
  1. FLUOROURACIL CREAM [Suspect]
     Active Substance: FLUOROURACIL
     Indication: PRECANCEROUS SKIN LESION
     Route: 061
     Dates: start: 20190218, end: 20190301

REACTIONS (2)
  - Skin exfoliation [Recovering/Resolving]
  - Product physical consistency issue [Unknown]

NARRATIVE: CASE EVENT DATE: 20190218
